FAERS Safety Report 24959581 (Version 8)
Quarter: 2025Q4

REPORT INFORMATION
  Report Type: Spontaneous
  Country: CA (occurrence: CA)
  Receive Date: 20250212
  Receipt Date: 20251015
  Transmission Date: 20260117
  Serious: Yes (Other)
  Sender: CELLTRION
  Company Number: CA-PFIZER INC-202500025716

PATIENT

DRUGS (9)
  1. INFLECTRA [Suspect]
     Active Substance: INFLIXIMAB-DYYB
     Indication: Colitis ulcerative
     Dosage: 300 MG, AT WEEKS 0, 2, 6, AND THEN EVERY 8 WEEKS
     Route: 042
     Dates: start: 20250120, end: 20250120
  2. INFLECTRA [Suspect]
     Active Substance: INFLIXIMAB-DYYB
     Dosage: 300 MG, AT WEEKS 0, 2, 6, AND THEN EVERY 8 WEEKS
     Route: 042
     Dates: start: 20250203, end: 20250203
  3. INFLECTRA [Suspect]
     Active Substance: INFLIXIMAB-DYYB
     Dosage: 300 MG, AT WEEKS 0, 2, 6, AND THEN EVERY 8 WEEKS
     Route: 042
     Dates: start: 20250203, end: 20250203
  4. INFLECTRA [Suspect]
     Active Substance: INFLIXIMAB-DYYB
     Dosage: 300 MG, 4 WEEKS (WEEK 6) (WEEKS 0, 2, 6 AND THEN EVERY 8 WEEKS)
     Route: 042
     Dates: start: 20250303
  5. INFLECTRA [Suspect]
     Active Substance: INFLIXIMAB-DYYB
     Dosage: 300 MG, 8 WEEKS (300 MG, WEEKS 0, 2, 6 AND THEN EVERY 8 WEEKS)
     Route: 042
     Dates: start: 20250430
  6. INFLECTRA [Suspect]
     Active Substance: INFLIXIMAB-DYYB
     Dosage: 300 MG,  AT WEEKS 0, 2, 6, AND THEN EVERY 8 WEEKS
     Route: 042
     Dates: start: 20250624
  7. BUDESONIDE [Concomitant]
     Active Substance: BUDESONIDE
     Dosage: 1 DF
     Dates: start: 20241113
  8. IRON [Concomitant]
     Active Substance: IRON
     Dosage: UNK (INFUSION)
     Dates: start: 20250423
  9. PANTOPRAZOLE [Concomitant]
     Active Substance: PANTOPRAZOLE
     Dosage: 40 MG
     Route: 048

REACTIONS (3)
  - Condition aggravated [Recovering/Resolving]
  - Myalgia [Unknown]
  - Drug ineffective [Unknown]

NARRATIVE: CASE EVENT DATE: 20250203
